FAERS Safety Report 6687113-9 (Version None)
Quarter: 2010Q2

REPORT INFORMATION
  Report Type: 
  Country: None (occurrence: None)
  Receive Date: 20100419
  Receipt Date: 20100412
  Transmission Date: 20101027
  Serious: Yes (Death, Other)
  Sender: FDA-Public Use
  Company Number: GB-ROCHE-684489

PATIENT
  Sex: Male
  Weight: 134 kg

DRUGS (5)
  1. AVASTIN [Suspect]
     Route: 042
     Dates: start: 20091027, end: 20091229
  2. CAPECITABINE [Suspect]
     Dosage: FOR 14 DAYS 3 WEEKLY
     Route: 048
     Dates: start: 20091027, end: 20100107
  3. OXALIPLATIN [Suspect]
     Route: 042
     Dates: start: 20091027, end: 20091229
  4. METOCLOPRAMIDE HYDROCHLORIDE [Concomitant]
     Route: 048
     Dates: start: 20091229
  5. DEXAMETHASONE [Concomitant]
     Dosage: FREQUENCY REPORTED AS OD, BD AND TDS
     Route: 048
     Dates: start: 20091229, end: 20091231

REACTIONS (5)
  - CONSTIPATION [None]
  - HYPOTENSION [None]
  - MALIGNANT NEOPLASM PROGRESSION [None]
  - PULMONARY EMBOLISM [None]
  - SEPSIS [None]
